FAERS Safety Report 23262469 (Version 2)
Quarter: 2024Q1

REPORT INFORMATION
  Report Type: Report from Study
  Country: IT (occurrence: None)
  Receive Date: 20231205
  Receipt Date: 20240102
  Transmission Date: 20240410
  Serious: Yes (Other)
  Sender: FDA-Public Use
  Company Number: 2023A270974

PATIENT
  Sex: Female

DRUGS (1)
  1. ACALABRUTINIB [Suspect]
     Active Substance: ACALABRUTINIB
     Route: 048
     Dates: start: 20220608, end: 202211

REACTIONS (3)
  - Hepatotoxicity [Unknown]
  - Hypertransaminasaemia [Unknown]
  - Rash [Unknown]
